FAERS Safety Report 17076152 (Version 1)
Quarter: 2019Q4

REPORT INFORMATION
  Report Type: Spontaneous
  Country: FR (occurrence: FR)
  Receive Date: 20191126
  Receipt Date: 20191126
  Transmission Date: 20200122
  Serious: Yes (Death, Hospitalization, Other)
  Sender: FDA-Public Use
  Company Number: FR-SHIRE-FR201937217

PATIENT

DRUGS (19)
  1. EUPANTOL [Concomitant]
     Active Substance: PANTOPRAZOLE SODIUM
     Indication: LUNG DISORDER
     Dosage: 40 MG, QD
     Route: 048
     Dates: start: 20111222
  2. IMODIUM [Concomitant]
     Active Substance: LOPERAMIDE HYDROCHLORIDE
     Indication: DIARRHOEA
     Dosage: 6 MG, TID
     Route: 048
     Dates: start: 20120814
  3. SOLUPRED [PREDNISOLONE] [Concomitant]
     Active Substance: PREDNISOLONE
     Dosage: 10 MG, QD
     Route: 048
     Dates: start: 20110614, end: 20110804
  4. HUMAN NORMAL IMMUNOGLOBULIN [Suspect]
     Active Substance: HUMAN IMMUNOGLOBULIN G
     Indication: MYASTHENIC SYNDROME
     Dosage: 85 GRAM, 1X/DAY:QD
     Route: 065
     Dates: start: 20120919
  5. ENOXAPARIN [Suspect]
     Active Substance: ENOXAPARIN
     Indication: MYASTHENIC SYNDROME
     Dosage: 4000 IU, QD
     Route: 065
     Dates: start: 20111118
  6. SEROPLEX [Concomitant]
     Active Substance: ESCITALOPRAM OXALATE
     Indication: DEPRESSION
     Dosage: 20 MG, QD
     Route: 048
     Dates: start: 20111118
  7. MESTINON [Suspect]
     Active Substance: PYRIDOSTIGMINE BROMIDE
     Indication: MYASTHENIC SYNDROME
     Dosage: 420 MG, QD
     Route: 065
     Dates: start: 200712, end: 20140328
  8. VORICONAZOLE. [Concomitant]
     Active Substance: VORICONAZOLE
     Indication: LUNG DISORDER
     Dosage: 200 MG, QD
     Route: 048
     Dates: start: 20111118
  9. MOTILIUM [Concomitant]
     Active Substance: DOMPERIDONE
     Indication: DIZZINESS
     Dosage: 30 MG, PRN
     Route: 048
     Dates: start: 2007
  10. AMLOR [Concomitant]
     Active Substance: AMLODIPINE BESYLATE
     Indication: HYPERTENSION
     Dosage: 5.0 MG, QD
     Route: 048
     Dates: start: 20120531
  11. FUROSEMIDE. [Concomitant]
     Active Substance: FUROSEMIDE
     Indication: HYPERTENSION
     Dosage: UNK UNK, QID
     Route: 048
     Dates: start: 20120531
  12. HYDROCORTISONE. [Suspect]
     Active Substance: HYDROCORTISONE
     Indication: BRONCHIAL DISORDER
     Dosage: 90 MILLIGRAM, 1X/DAY:QD
     Route: 048
     Dates: start: 20120903
  13. ALPRAZOLAM. [Concomitant]
     Active Substance: ALPRAZOLAM
     Indication: DEPRESSION
     Dosage: 0.5 MG, BID
     Route: 048
     Dates: start: 20111118
  14. ATARAX [Concomitant]
     Active Substance: HYDROXYZINE HYDROCHLORIDE
     Indication: DEPRESSION
     Dosage: 50 MG, QD
     Route: 048
     Dates: start: 20120914
  15. SOLUPRED [PREDNISOLONE] [Concomitant]
     Active Substance: PREDNISOLONE
     Indication: BRONCHIAL DISORDER
     Dosage: 40 MG, QD
     Route: 048
     Dates: start: 200901, end: 20110614
  16. SOLUPRED [PREDNISOLONE] [Concomitant]
     Active Substance: PREDNISOLONE
     Dosage: 5 MG, QD
     Route: 048
     Dates: start: 20120529, end: 201209
  17. FIRDAPSE [Suspect]
     Active Substance: AMIFAMPRIDINE
     Indication: MYASTHENIC SYNDROME
     Dosage: 70 MG, QD
     Route: 048
     Dates: start: 20101118, end: 20140328
  18. NOXAFIL [Concomitant]
     Active Substance: POSACONAZOLE
     Indication: LUNG DISORDER
     Dosage: 160 MG, QID
     Route: 048
     Dates: start: 20120522
  19. SOLUPRED [PREDNISOLONE] [Concomitant]
     Active Substance: PREDNISOLONE
     Dosage: 20 MG, QD
     Route: 048
     Dates: start: 20110805, end: 20120329

REACTIONS (1)
  - Pseudomonas infection [Unknown]

NARRATIVE: CASE EVENT DATE: 20140116
